APPROVED DRUG PRODUCT: NEGGRAM
Active Ingredient: NALIDIXIC ACID
Strength: 500MG
Dosage Form/Route: TABLET;ORAL
Application: N014214 | Product #004
Applicant: SANOFI AVENTIS US LLC
Approved: Approved Prior to Jan 1, 1982 | RLD: No | RS: No | Type: DISCN